FAERS Safety Report 20315904 (Version 1)
Quarter: 2022Q1

REPORT INFORMATION
  Report Type: Other
  Country: US (occurrence: None)
  Receive Date: 20220110
  Receipt Date: 20220110
  Transmission Date: 20220423
  Serious: Yes (Life-Threatening)
  Sender: FDA-Public Use
  Company Number: US-ROCHE-2916151

PATIENT
  Age: 49 Year
  Sex: Female

DRUGS (5)
  1. RITUXAN [Suspect]
     Active Substance: RITUXIMAB
     Indication: Immune thrombocytopenia
     Route: 065
  2. PREDNISONE [Concomitant]
     Active Substance: PREDNISONE
  3. AYGESTIN [Concomitant]
     Active Substance: NORETHINDRONE ACETATE
     Dosage: ORALLY TWICE DAILY FOR SEVEN DAYS.
     Route: 048
  4. AMICAR [Concomitant]
     Active Substance: AMINOCAPROIC ACID
  5. NPLATE [Concomitant]
     Active Substance: ROMIPLOSTIM

REACTIONS (1)
  - Tumour lysis syndrome [Recovered/Resolved]
